FAERS Safety Report 7169503-3 (Version None)
Quarter: 2010Q4

REPORT INFORMATION
  Report Type: 
  Country: None (occurrence: None)
  Receive Date: 20101217
  Receipt Date: 20101209
  Transmission Date: 20110411
  Serious: Yes (Other)
  Sender: FDA-Public Use
  Company Number: US-RB-016822-10

PATIENT
  Age: 77 Year
  Sex: Male

DRUGS (1)
  1. MUCINEX DM [Suspect]
     Dosage: BEGAN TAKING IT ON 07-DEC-2010, 2 TABLETS FOR THE FIRST DOSE AND 1 TABLET EVERY 12 HOURS AFTER THAT
     Route: 048

REACTIONS (1)
  - EPISTAXIS [None]
